FAERS Safety Report 4718266-7 (Version None)
Quarter: 2005Q3

REPORT INFORMATION
  Report Type: 
  Country: None (occurrence: None)
  Receive Date: 20050714
  Receipt Date: 20050420
  Transmission Date: 20060218
  Serious: Yes (Other)
  Sender: FDA-Public Use
  Company Number: HQWYE422728APR05

PATIENT
  Sex: Male

DRUGS (1)
  1. ADVIL [Suspect]
     Indication: BACK PAIN
     Dosage: 600 MG TABLETS AROUND FOUR TIMES A DAY, ORAL
     Route: 048
     Dates: start: 20020101, end: 20020101

REACTIONS (2)
  - HAEMORRHAGE [None]
  - OVERDOSE [None]
